FAERS Safety Report 8836933 (Version 1)
Quarter: 2012Q4

REPORT INFORMATION
  Report Type: Spontaneous
  Country: US (occurrence: None)
  Receive Date: 20121010
  Receipt Date: 20121010
  Transmission Date: 20130627
  Serious: Yes (Other)
  Sender: FDA-Public Use
  Company Number: ADR-2012-01824

PATIENT
  Age: 43 Year
  Sex: Female

DRUGS (1)
  1. BACLOFEN [Suspect]
     Indication: MULTIPLE SCLEROSIS

REACTIONS (3)
  - Implant site effusion [None]
  - Cerebrospinal fluid leakage [None]
  - Headache [None]
